FAERS Safety Report 12589582 (Version 2)
Quarter: 2016Q4

REPORT INFORMATION
  Report Type: Spontaneous
  Country: US (occurrence: US)
  Receive Date: 20160725
  Receipt Date: 20161206
  Transmission Date: 20170207
  Serious: No
  Sender: FDA-Public Use
  Company Number: US-AMGEN-USASP2016093935

PATIENT
  Age: 68 Year
  Sex: Female

DRUGS (1)
  1. ENBREL [Suspect]
     Active Substance: ETANERCEPT
     Indication: RHEUMATOID ARTHRITIS
     Dosage: 50 MG, QWK
     Route: 058
     Dates: start: 20160711

REACTIONS (9)
  - Oropharyngeal pain [Unknown]
  - Erythema [Unknown]
  - Throat irritation [Unknown]
  - Productive cough [Not Recovered/Not Resolved]
  - Local swelling [Unknown]
  - Faeces pale [Unknown]
  - Nasopharyngitis [Unknown]
  - Incorrect product storage [Unknown]
  - Myalgia [Unknown]

NARRATIVE: CASE EVENT DATE: 2016
